FAERS Safety Report 18367945 (Version 1)
Quarter: 2020Q4

REPORT INFORMATION
  Report Type: Spontaneous
  Country: GR (occurrence: GR)
  Receive Date: 20201009
  Receipt Date: 20201009
  Transmission Date: 20210114
  Serious: Yes (Other)
  Sender: FDA-Public Use
  Company Number: GR-UCBSA-2020040277

PATIENT
  Sex: Male

DRUGS (1)
  1. XOZAL [Suspect]
     Active Substance: LEVOCETIRIZINE
     Indication: PRURITUS
     Dosage: 1 DOSAGE FORM, 2X/DAY (BID)

REACTIONS (3)
  - Genital infection fungal [Unknown]
  - Drug ineffective [Unknown]
  - Erythema [Not Recovered/Not Resolved]
